FAERS Safety Report 4471116-9 (Version None)
Quarter: 2004Q4

REPORT INFORMATION
  Report Type: 
  Country: None (occurrence: None)
  Receive Date: 20041008
  Receipt Date: 20040924
  Transmission Date: 20050328
  Serious: Yes (Death)
  Sender: FDA-Public Use
  Company Number: 2004S1002393

PATIENT
  Age: 47 Year
  Sex: Female

DRUGS (4)
  1. CLOZAPINE [Suspect]
     Indication: BIPOLAR DISORDER
     Dosage: 200MG QD ORAL
     Route: 048
     Dates: start: 20000101, end: 20010901
  2. CLOZAPINE [Suspect]
     Indication: BIPOLAR DISORDER
     Dosage: 200MG QD ORAL
     Route: 048
     Dates: start: 20020101, end: 20040723
  3. ACETMINOPHEN W/CODEINE [Concomitant]
  4. LITHIUM [Concomitant]

REACTIONS (2)
  - METASTASES TO LIVER [None]
  - NEUROBLASTOMA [None]
